FAERS Safety Report 16056549 (Version 1)
Quarter: 2019Q2

REPORT INFORMATION
  Report Type: Spontaneous
  Country: US (occurrence: US)
  Receive Date: 20190309
  Receipt Date: 20190309
  Transmission Date: 20190711
  Serious: Yes (Disabling)
  Sender: FDA-Public Use
  Company Number: None

PATIENT
  Age: 62 Year
  Sex: Female
  Weight: 63 kg

DRUGS (14)
  1. IMVEXXY [Suspect]
     Active Substance: ESTRADIOL
     Indication: VULVOVAGINAL DRYNESS
     Dosage: ?          QUANTITY:1 SUPPOSITORY(IES);?
     Route: 067
     Dates: start: 20181203, end: 20181217
  2. MAGNESIUM BIS-GLYCINATE [Concomitant]
  3. ONE DAY MULVITAMIN 55+ GU ELECTROLYTES [Concomitant]
  4. LIOTHYRININE [Concomitant]
  5. VITAMIN D NOS [Concomitant]
     Active Substance: VITAMIN D NOS
  6. SYNTHROID [Concomitant]
     Active Substance: LEVOTHYROXINE SODIUM
  7. LAMIVUDINE. [Concomitant]
     Active Substance: LAMIVUDINE
  8. VITAMIN E [Concomitant]
     Active Substance: .ALPHA.-TOCOPHEROL
  9. SYSTANE EYE DROPS, NO PRESERVATIVE [Concomitant]
  10. TRAZODONE [Concomitant]
     Active Substance: TRAZODONE HYDROCHLORIDE
  11. GLUCOSAMINE [Concomitant]
     Active Substance: GLUCOSAMINE
  12. FLORASTOR [Concomitant]
     Active Substance: SACCHAROMYCES CEREVISIAE
  13. EQUILIBRANT [Concomitant]
  14. VITAMIN B12 [Concomitant]
     Active Substance: CYANOCOBALAMIN

REACTIONS (18)
  - Pulmonary congestion [None]
  - Parosmia [None]
  - Sinusitis [None]
  - Chills [None]
  - Genital pain [None]
  - Bacterial vaginosis [None]
  - Abdominal distension [None]
  - Weight increased [None]
  - Acne [None]
  - Diarrhoea [None]
  - Nocturia [None]
  - General physical health deterioration [None]
  - Vaginal discharge [None]
  - Infection [None]
  - Urinary incontinence [None]
  - Fatigue [None]
  - Malaise [None]
  - Proctalgia [None]

NARRATIVE: CASE EVENT DATE: 20181203
